FAERS Safety Report 5242791-6 (Version None)
Quarter: 2007Q1

REPORT INFORMATION
  Report Type: 
  Country: None (occurrence: None)
  Receive Date: 20061201
  Receipt Date: 20060821
  Transmission Date: 20070707
  Serious: No
  Sender: FDA-Public Use
  Company Number: 2006PV013411

PATIENT
  Age: 66 Year
  Sex: Male
  Weight: 100.6985 kg

DRUGS (11)
  1. BYETTA [Suspect]
     Indication: DIABETES MELLITUS NON-INSULIN-DEPENDENT
     Dosage: SEE IMAGE
     Route: 058
     Dates: start: 20060422, end: 20060101
  2. BYETTA [Suspect]
     Indication: DIABETES MELLITUS NON-INSULIN-DEPENDENT
     Dosage: SEE IMAGE
     Route: 058
     Dates: start: 20060808, end: 20060908
  3. BYETTA [Suspect]
     Indication: DIABETES MELLITUS NON-INSULIN-DEPENDENT
     Dosage: SEE IMAGE
     Route: 058
     Dates: start: 20060909
  4. BYETTA [Suspect]
  5. GLUCOVANCE [Concomitant]
  6. ACTOS /USA/ [Concomitant]
  7. GLYBURIDE AND METFORMIN HCL [Concomitant]
  8. LISINOPRIL [Concomitant]
  9. FLOMAX [Concomitant]
  10. ASPIRIN [Concomitant]
  11. LEXAPRO [Concomitant]

REACTIONS (9)
  - ANOREXIA [None]
  - ARTHRALGIA [None]
  - BLOOD GLUCOSE INCREASED [None]
  - DECREASED APPETITE [None]
  - DIARRHOEA [None]
  - FATIGUE [None]
  - JOINT SWELLING [None]
  - NAUSEA [None]
  - WEIGHT DECREASED [None]
